FAERS Safety Report 12562246 (Version 1)
Quarter: 2016Q3

REPORT INFORMATION
  Report Type: Report from Study
  Country: AR (occurrence: AR)
  Receive Date: 20160715
  Receipt Date: 20160715
  Transmission Date: 20161109
  Serious: Yes (Other)
  Sender: FDA-Public Use
  Company Number: PHHY2016AR079638

PATIENT
  Age: 70 Year
  Sex: Female

DRUGS (7)
  1. EXFORGE [Suspect]
     Active Substance: AMLODIPINE BESYLATE\VALSARTAN
     Indication: HYPERTENSION
     Dosage: 1 DF, QD (160 VALSARTAN AND 5 HYDROCHLOROTHIAZIDE, UNSPECIFIED UNITS)
     Route: 065
  2. METFORMIN [Concomitant]
     Active Substance: METFORMIN HYDROCHLORIDE
     Indication: PRODUCT USED FOR UNKNOWN INDICATION
     Route: 065
  3. LIRAGLUTIDE [Concomitant]
     Active Substance: LIRAGLUTIDE
     Indication: PRODUCT USED FOR UNKNOWN INDICATION
     Route: 065
  4. LEVOTHYROXINE. [Concomitant]
     Active Substance: LEVOTHYROXINE
     Indication: PRODUCT USED FOR UNKNOWN INDICATION
     Route: 065
  5. INFLUENZA VACCINE [Suspect]
     Active Substance: INFLUENZA VIRUS VACCINE
     Indication: PRODUCT USED FOR UNKNOWN INDICATION
     Route: 065
     Dates: start: 20160603, end: 20160603
  6. DICLOFENAC [Suspect]
     Active Substance: DICLOFENAC
     Indication: PRODUCT USED FOR UNKNOWN INDICATION
     Route: 065
  7. PREGABALIN. [Concomitant]
     Active Substance: PREGABALIN
     Indication: PRODUCT USED FOR UNKNOWN INDICATION
     Route: 065

REACTIONS (14)
  - Mental disorder [Recovering/Resolving]
  - Abdominal discomfort [Unknown]
  - Blood pressure diastolic decreased [Unknown]
  - Liver disorder [Unknown]
  - Memory impairment [Recovering/Resolving]
  - Arthralgia [Unknown]
  - Back pain [Unknown]
  - Dizziness [Unknown]
  - Malaise [Unknown]
  - Neck pain [Unknown]
  - Stress [Recovering/Resolving]
  - Colitis [Unknown]
  - Weight decreased [Recovering/Resolving]
  - Hypersomnia [Unknown]

NARRATIVE: CASE EVENT DATE: 20160619
